FAERS Safety Report 24316431 (Version 1)
Quarter: 2024Q3

REPORT INFORMATION
  Report Type: Spontaneous
  Country: DE (occurrence: DE)
  Receive Date: 20240913
  Receipt Date: 20240913
  Transmission Date: 20241017
  Serious: Yes (Other)
  Sender: AMGEN
  Company Number: DE-AMGEN-DEUSP2024181190

PATIENT
  Age: 72 Year
  Sex: Female

DRUGS (1)
  1. REPATHA [Suspect]
     Active Substance: EVOLOCUMAB
     Indication: Type IIa hyperlipidaemia
     Dosage: UNK, Q3WK (EVERY 21 DAYS )
     Route: 065

REACTIONS (7)
  - Autoimmune thyroiditis [Unknown]
  - Sjogren^s syndrome [Unknown]
  - Off label use [Unknown]
  - Dizziness [Unknown]
  - Headache [Unknown]
  - Myalgia [Unknown]
  - Visual impairment [Unknown]
